FAERS Safety Report 20765469 (Version 1)
Quarter: 2022Q2

REPORT INFORMATION
  Report Type: Other
  Country: None (occurrence: US)
  Receive Date: 20220428
  Receipt Date: 20220428
  Transmission Date: 20220720
  Serious: No
  Sender: FDA-Public Use
  Company Number: US-Ascent Pharmaceuticals, Inc.-2128274

PATIENT

DRUGS (1)
  1. METHYLPHENIDATE HYDROCHLORIDE [Suspect]
     Active Substance: METHYLPHENIDATE HYDROCHLORIDE
     Indication: Attention deficit hyperactivity disorder
     Route: 065
     Dates: start: 202203

REACTIONS (7)
  - Headache [Unknown]
  - Disturbance in attention [Unknown]
  - Feeling jittery [Unknown]
  - Constipation [Unknown]
  - Product substitution issue [Unknown]
  - Dry eye [Unknown]
  - Drug ineffective [Unknown]
